FAERS Safety Report 8473564 (Version 2)
Quarter: 2012Q4

REPORT INFORMATION
  Report Type: 
  Country: IL (occurrence: IL)
  Receive Date: 20120323
  Receipt Date: 20121026
  Transmission Date: 20130627
  Serious: Yes (Other)
  Sender: FDA-Public Use
  Company Number: IL-JNJFOC-20120308680

PATIENT
  Sex: Male

DRUGS (2)
  1. XEPLION [Suspect]
     Indication: PRODUCT USED FOR UNKNOWN INDICATION
     Route: 030
  2. XEPLION [Suspect]
     Indication: PRODUCT USED FOR UNKNOWN INDICATION
     Route: 030

REACTIONS (1)
  - Inappropriate schedule of drug administration [Unknown]
